FAERS Safety Report 7444840-3 (Version None)
Quarter: 2011Q2

REPORT INFORMATION
  Report Type: 
  Country: None (occurrence: None)
  Receive Date: 20110426
  Receipt Date: 20110426
  Transmission Date: 20111010
  Serious: No
  Sender: FDA-Public Use
  Company Number: None

PATIENT
  Age: 54 Year
  Sex: Female

DRUGS (1)
  1. VOLTAREN [Suspect]
     Indication: OSTEOARTHRITIS
     Dosage: 2 GRAMS 4 TIMES A DAY TOP
     Route: 061
     Dates: start: 20110418, end: 20110425

REACTIONS (3)
  - HEARING IMPAIRED [None]
  - TINNITUS [None]
  - INSOMNIA [None]
